FAERS Safety Report 18401620 (Version 2)
Quarter: 2020Q4

REPORT INFORMATION
  Report Type: Spontaneous
  Country: IT (occurrence: IT)
  Receive Date: 20201020
  Receipt Date: 20201109
  Transmission Date: 20210114
  Serious: Yes (Hospitalization, Other)
  Sender: FDA-Public Use
  Company Number: IT-AUROBINDO-AUR-APL-2020-052366

PATIENT
  Age: 83 Year
  Sex: Female

DRUGS (1)
  1. CEFUROXIME. [Suspect]
     Active Substance: CEFUROXIME
     Indication: VERTIGO
     Dosage: UNK
     Route: 065

REACTIONS (10)
  - Haemoptysis [Unknown]
  - Pulmonary necrosis [Unknown]
  - Bronchopulmonary aspergillosis [Unknown]
  - Breath sounds abnormal [Unknown]
  - General physical health deterioration [Unknown]
  - Pyrexia [Unknown]
  - Medication error [Unknown]
  - Pancytopenia [Unknown]
  - Wrong product administered [Unknown]
  - Rales [Unknown]
